FAERS Safety Report 11698777 (Version 1)
Quarter: 2015Q4

REPORT INFORMATION
  Report Type: Spontaneous
  Country: DE (occurrence: DE)
  Receive Date: 20151104
  Receipt Date: 20151104
  Transmission Date: 20160304
  Serious: Yes (Hospitalization)
  Sender: FDA-Public Use
  Company Number: DE-ELI_LILLY_AND_COMPANY-DE201510008620

PATIENT
  Age: 28 Year
  Sex: Female

DRUGS (3)
  1. HUMALOG [Suspect]
     Active Substance: INSULIN LISPRO
     Indication: DIABETES MELLITUS
     Dosage: UNK, UNKNOWN
     Route: 058
     Dates: start: 2003
  2. RAMILICH [Concomitant]
     Active Substance: RAMIPRIL
     Indication: HYPERTENSION
     Dosage: UNK
  3. HUMAN INSULIN (RDNA ORIGIN) REGULAR [Suspect]
     Active Substance: INSULIN HUMAN
     Indication: DIABETES MELLITUS
     Dosage: UNK, UNKNOWN
     Route: 058
     Dates: start: 2003

REACTIONS (1)
  - Abscess [Not Recovered/Not Resolved]

NARRATIVE: CASE EVENT DATE: 2015
